FAERS Safety Report 5256237-5 (Version None)
Quarter: 2007Q1

REPORT INFORMATION
  Report Type: 
  Country: None (occurrence: None)
  Receive Date: 20070302
  Receipt Date: 20070302
  Transmission Date: 20070707
  Serious: Yes (Life-Threatening, Hospitalization)
  Sender: FDA-Public Use
  Company Number: None

PATIENT
  Age: 71 Year
  Sex: Male
  Weight: 101 kg

DRUGS (22)
  1. ZOSYN [Suspect]
     Indication: INFECTION
     Dosage: 4.5G Q6HR IV
     Route: 042
  2. LINEZOLID [Suspect]
     Indication: INFECTION
     Dosage: 600MG Q12HR IV
     Route: 042
  3. APAP TAB [Concomitant]
  4. DUONEB [Concomitant]
  5. VIT C [Concomitant]
  6. FERROUS SULFATE [Concomitant]
  7. FLUCONAZOLE [Concomitant]
  8. HEPARIN LOCK-FLUSH [Concomitant]
  9. HYDROCHLOROTHIAZIDE [Concomitant]
  10. VICODIN [Concomitant]
  11. LANTUS [Concomitant]
  12. HUMALOG [Concomitant]
  13. LISINOPRIL [Concomitant]
  14. ATIVAN [Concomitant]
  15. MAGNESIUM HYDROXIDE TAB [Concomitant]
  16. LOPRESSOR [Concomitant]
  17. M.V.I. [Concomitant]
  18. NITROGLYCERIN [Concomitant]
  19. PROTONIX [Concomitant]
  20. ACCUZYME [Concomitant]
  21. PREDNISONE [Concomitant]
  22. ZINC SULFATE [Concomitant]

REACTIONS (5)
  - GASTROINTESTINAL HAEMORRHAGE [None]
  - INTERNATIONAL NORMALISED RATIO INCREASED [None]
  - LEUKOPENIA [None]
  - PROTHROMBIN TIME PROLONGED [None]
  - THROMBOCYTOPENIA [None]
